FAERS Safety Report 8353168-9 (Version None)
Quarter: 2012Q2

REPORT INFORMATION
  Report Type: 
  Country: None (occurrence: None)
  Receive Date: 20120511
  Receipt Date: 20120427
  Transmission Date: 20120825
  Serious: Yes (Disabling, Other)
  Sender: FDA-Public Use
  Company Number: FI-PFIZER INC-2012054984

PATIENT
  Age: 84 Year
  Sex: Female

DRUGS (3)
  1. XALATAN [Suspect]
     Indication: GLAUCOMA
     Dosage: 1 DROP ONCE DAILY (IN THE EVENING) TO BOTH EYES
     Route: 047
  2. BISOPROLOL [Concomitant]
     Indication: HYPERTENSION
     Dosage: 5 MG, UNK
  3. FELODIPINE [Concomitant]
     Indication: HYPERTENSION
     Dosage: 5 MG, UNK

REACTIONS (5)
  - MALAISE [None]
  - FEELING ABNORMAL [None]
  - DIZZINESS [None]
  - HEADACHE [None]
  - VISUAL IMPAIRMENT [None]
